FAERS Safety Report 20623219 (Version 2)
Quarter: 2025Q2

REPORT INFORMATION
  Report Type: Report from Study
  Country: CO (occurrence: CO)
  Receive Date: 20220322
  Receipt Date: 20250517
  Transmission Date: 20250716
  Serious: Yes (Hospitalization, Other)
  Sender: AMGEN
  Company Number: CO-AMGEN-COLSL2022043060

PATIENT
  Age: 70 Year
  Sex: Male

DRUGS (3)
  1. NPLATE [Suspect]
     Active Substance: ROMIPLOSTIM
     Indication: Immune thrombocytopenia
     Dosage: 250 MICROGRAM, QWK
     Route: 058
     Dates: start: 20161018
  2. NPLATE [Suspect]
     Active Substance: ROMIPLOSTIM
     Dosage: 572 MICROGRAM, QWK
     Route: 058
     Dates: end: 202505
  3. NPLATE [Suspect]
     Active Substance: ROMIPLOSTIM
     Dosage: 572 MICROGRAM, QWK
     Route: 058
     Dates: start: 202505

REACTIONS (5)
  - Therapeutic product effect decreased [Not Recovered/Not Resolved]
  - Thrombocytosis [Recovered/Resolved]
  - Thrombocytopenia [Not Recovered/Not Resolved]
  - Intentional product misuse [Recovered/Resolved]
  - Therapy interrupted [Unknown]

NARRATIVE: CASE EVENT DATE: 20250501
